FAERS Safety Report 24774998 (Version 1)
Quarter: 2024Q4

REPORT INFORMATION
  Report Type: Report from Study
  Country: CA (occurrence: CA)
  Receive Date: 20241226
  Receipt Date: 20241226
  Transmission Date: 20250115
  Serious: Yes (Other)
  Sender: ROCHE
  Company Number: CA-ROCHE-10000056931

PATIENT
  Age: 28 Year
  Sex: Male

DRUGS (1)
  1. OCREVUS [Suspect]
     Active Substance: OCRELIZUMAB
     Indication: Multiple sclerosis
     Route: 042
     Dates: start: 20200114

REACTIONS (10)
  - Infusion related reaction [Recovered/Resolved]
  - Visual impairment [Unknown]
  - Blindness [Unknown]
  - Visual field defect [Unknown]
  - Tremor [Unknown]
  - Back pain [Unknown]
  - Scoliosis [Unknown]
  - Decreased appetite [Unknown]
  - Temperature intolerance [Unknown]
  - Memory impairment [Unknown]

NARRATIVE: CASE EVENT DATE: 20240812
